FAERS Safety Report 9498298 (Version 1)
Quarter: 2013Q3

REPORT INFORMATION
  Report Type: Spontaneous
  Country: US (occurrence: US)
  Receive Date: 20130904
  Receipt Date: 20130904
  Transmission Date: 20140515
  Serious: Yes (Hospitalization)
  Sender: FDA-Public Use
  Company Number: US-PFIZER INC-2013252183

PATIENT
  Age: 89 Year
  Sex: Female
  Weight: 64.85 kg

DRUGS (1)
  1. ZYVOX [Suspect]
     Dosage: UNK
     Dates: start: 201308, end: 201308

REACTIONS (4)
  - Urinary tract infection [Unknown]
  - Disease recurrence [Unknown]
  - Malaise [Recovering/Resolving]
  - Cystitis [Unknown]
